FAERS Safety Report 6818149-2 (Version None)
Quarter: 2010Q3

REPORT INFORMATION
  Report Type: 
  Country: None (occurrence: None)
  Receive Date: 20100706
  Receipt Date: 20100628
  Transmission Date: 20110219
  Serious: Yes (Hospitalization)
  Sender: FDA-Public Use
  Company Number: FR-SANOFI-AVENTIS-2010SA037105

PATIENT
  Age: 85 Year
  Sex: Female

DRUGS (3)
  1. LOVENOX [Suspect]
     Indication: THROMBOSIS PROPHYLAXIS
     Route: 058
     Dates: start: 20100607
  2. ESOMEPRAZOLE MAGNESIUM [Suspect]
     Route: 042
     Dates: start: 20100607, end: 20100611
  3. NORSET [Suspect]
     Route: 048
     Dates: start: 20100611, end: 20100621

REACTIONS (3)
  - ANAEMIA [None]
  - LYMPHOPENIA [None]
  - THROMBOCYTOPENIA [None]
